FAERS Safety Report 17749643 (Version 2)
Quarter: 2020Q2

REPORT INFORMATION
  Report Type: Spontaneous
  Country: DK (occurrence: DK)
  Receive Date: 20200506
  Receipt Date: 20200525
  Transmission Date: 20200714
  Serious: Yes (Other)
  Sender: FDA-Public Use
  Company Number: DK-AMGEN-DNKSP2020069748

PATIENT

DRUGS (6)
  1. ZOLEDRONIC ACID [Concomitant]
     Active Substance: ZOLEDRONIC ACID
  2. PROLIA [Suspect]
     Active Substance: DENOSUMAB
     Indication: HYPERPARATHYROIDISM PRIMARY
     Dosage: 60 MILLIGRAM, Q6MO
     Route: 058
  3. VITAMIN D [COLECALCIFEROL] [Concomitant]
     Active Substance: CHOLECALCIFEROL
  4. ALENDRONATE [Concomitant]
     Active Substance: ALENDRONATE SODIUM
  5. IBANDRONATE [Concomitant]
     Active Substance: IBANDRONATE SODIUM
  6. MIMPARA [Suspect]
     Active Substance: CINACALCET HYDROCHLORIDE
     Indication: HYPERPARATHYROIDISM PRIMARY
     Dosage: 30 MILLIGRAM, QD
     Route: 065

REACTIONS (14)
  - Blood urea increased [Unknown]
  - Back pain [Unknown]
  - Hypocalcaemia [Unknown]
  - Blood phosphorus decreased [Unknown]
  - Abdominal pain [Unknown]
  - Insomnia [Unknown]
  - Arthralgia [Unknown]
  - Palpitations [Unknown]
  - Asthenia [Unknown]
  - Nausea [Unknown]
  - Hyperparathyroidism secondary [Recovered/Resolved]
  - Musculoskeletal pain [Unknown]
  - Hyperhidrosis [Unknown]
  - Upper respiratory tract infection [Unknown]
